FAERS Safety Report 5875516-1 (Version None)
Quarter: 2008Q3

REPORT INFORMATION
  Report Type: 
  Country: None (occurrence: None)
  Receive Date: 20080909
  Receipt Date: 20080903
  Transmission Date: 20090109
  Serious: Yes (Hospitalization)
  Sender: FDA-Public Use
  Company Number: FR-TYCO HEALTHCARE/MALLINCKRODT-T200801448

PATIENT

DRUGS (1)
  1. OPTIJECT [Suspect]
     Indication: SCAN
     Dosage: 100 MG, SINGLE
     Route: 042
     Dates: start: 20080425, end: 20080425

REACTIONS (3)
  - ANAPHYLACTIC SHOCK [None]
  - CARDIAC ARREST [None]
  - RESPIRATORY ARREST [None]
